FAERS Safety Report 7044062-4 (Version None)
Quarter: 2010Q4

REPORT INFORMATION
  Report Type: 
  Country: None (occurrence: None)
  Receive Date: 20101013
  Receipt Date: 20101005
  Transmission Date: 20110411
  Serious: Yes (Other)
  Sender: FDA-Public Use
  Company Number: JP-PFIZER INC-2010122546

PATIENT
  Age: 72 Year
  Sex: Male

DRUGS (3)
  1. SOLANAX [Suspect]
     Indication: INSOMNIA
     Dosage: UNK
     Route: 048
  2. VITAMIN B [Concomitant]
     Dosage: UNK
  3. CALCIUM [Concomitant]
     Dosage: UNK

REACTIONS (1)
  - BLOOD CREATINE PHOSPHOKINASE INCREASED [None]
